FAERS Safety Report 8970622 (Version 1)
Quarter: 2012Q4

REPORT INFORMATION
  Report Type: 
  Country: US (occurrence: US)
  Receive Date: 20121218
  Receipt Date: 20121218
  Transmission Date: 20130627
  Serious: Yes (Other)
  Sender: FDA-Public Use
  Company Number: US-BRISTOL-MYERS SQUIBB COMPANY-17070129

PATIENT
  Sex: Female

DRUGS (1)
  1. ABILIFY [Suspect]
     Dosage: 1 DF:2-20mg

REACTIONS (6)
  - Movement disorder [Unknown]
  - Contusion [Unknown]
  - Pain in extremity [Unknown]
  - Sexual dysfunction [Unknown]
  - Tremor [Unknown]
  - Muscle spasms [Unknown]
